FAERS Safety Report 7433539-5 (Version None)
Quarter: 2011Q2

REPORT INFORMATION
  Report Type: 
  Country: None (occurrence: None)
  Receive Date: 20110422
  Receipt Date: 20110419
  Transmission Date: 20111010
  Serious: No
  Sender: FDA-Public Use
  Company Number: US-B.I. PHARMACEUTICALS,INC./RIDGEFIELD-2011-BP-11237BP

PATIENT
  Sex: Female

DRUGS (10)
  1. PEPCID [Concomitant]
     Indication: GASTROOESOPHAGEAL REFLUX DISEASE
     Dosage: 40 MG
     Route: 048
  2. STOOL SOFTENER [Concomitant]
     Indication: CONSTIPATION
     Route: 048
  3. NORTAC [Concomitant]
     Indication: ATRIAL FIBRILLATION
     Dosage: 40 MG
     Route: 048
  4. BENAZEPRIL HYDROCHLORIDE [Concomitant]
     Indication: HYPERTENSION
     Dosage: 40 MG
     Route: 048
     Dates: start: 20101001
  5. PRADAXA [Suspect]
     Indication: ATRIAL FIBRILLATION
     Dosage: 300 MG
     Route: 048
     Dates: start: 20110405
  6. LASIX [Concomitant]
     Indication: HYPERTENSION
     Dosage: 80 MG
     Route: 048
  7. BUSPAR [Concomitant]
     Indication: ANXIETY
     Dosage: 30 MG
     Route: 048
  8. POTASSIUM CHLORIDE [Concomitant]
     Indication: ELECTROLYTE SUBSTITUTION THERAPY
     Dosage: 20 MEQ
     Route: 048
  9. DIGOXIN [Concomitant]
     Indication: ATRIAL FIBRILLATION
     Dosage: 1.25 MG
     Route: 048
  10. PRO BIOTICS [Concomitant]
     Indication: ABDOMINAL DISCOMFORT
     Route: 048
     Dates: start: 20101201

REACTIONS (1)
  - HEADACHE [None]
